FAERS Safety Report 9965592 (Version 1)
Quarter: 2014Q1

REPORT INFORMATION
  Report Type: Report from Study
  Country: US (occurrence: US)
  Receive Date: 20140305
  Receipt Date: 20140305
  Transmission Date: 20141002
  Serious: No
  Sender: FDA-Public Use
  Company Number: US-ABBVIE-13P-163-1125576-00

PATIENT
  Age: 68 Year
  Sex: Male

DRUGS (6)
  1. HUMIRA [Suspect]
     Indication: PSORIASIS
  2. TOPROL [Concomitant]
     Indication: DRUG THERAPY
  3. LIPITOR [Concomitant]
     Indication: DRUG THERAPY
  4. ASPIRIN [Concomitant]
     Indication: DRUG THERAPY
  5. ACTIVE 50 PLUS [Concomitant]
     Indication: PRODUCT USED FOR UNKNOWN INDICATION
  6. OTHER TOPICAL MEDICATIONS [Concomitant]
     Indication: PRODUCT USED FOR UNKNOWN INDICATION

REACTIONS (1)
  - Mycobacterium tuberculosis complex test [Not Recovered/Not Resolved]
